FAERS Safety Report 13246705 (Version 2)
Quarter: 2017Q1

REPORT INFORMATION
  Report Type: Spontaneous
  Country: US (occurrence: US)
  Receive Date: 20170217
  Receipt Date: 20170228
  Transmission Date: 20170428
  Serious: No
  Sender: FDA-Public Use
  Company Number: US-HORIZON-RAV-0051-2017

PATIENT
  Age: 32 Year
  Sex: Female

DRUGS (1)
  1. RAVICTI [Suspect]
     Active Substance: GLYCEROL PHENYLBUTYRATE
     Indication: HEPATOCELLULAR CARCINOMA
     Dates: start: 20170114

REACTIONS (3)
  - Nausea [Unknown]
  - Off label use [Unknown]
  - Vomiting [Unknown]
